FAERS Safety Report 6924317-1 (Version None)
Quarter: 2010Q3

REPORT INFORMATION
  Report Type: 
  Country: None (occurrence: None)
  Receive Date: 20100811
  Receipt Date: 20100811
  Transmission Date: 20110219
  Serious: Yes (Other)
  Sender: FDA-Public Use
  Company Number: None

PATIENT
  Age: 29 Year
  Sex: Female
  Weight: 68.9467 kg

DRUGS (1)
  1. SULFAMETHOXAZOLE AND TRIMETHOPRIM [Suspect]
     Indication: LOCALISED INFECTION
     Dosage: TWENTY CC-ML- BY MOUTH TWICE DAILY PO
     Route: 048
     Dates: start: 20100805, end: 20100807

REACTIONS (2)
  - ARTHRALGIA [None]
  - PRODUCT SUBSTITUTION ISSUE [None]
